FAERS Safety Report 4687303-0 (Version None)
Quarter: 2005Q2

REPORT INFORMATION
  Report Type: 
  Country: None (occurrence: None)
  Receive Date: 20050608
  Receipt Date: 20050526
  Transmission Date: 20051028
  Serious: Yes (Other)
  Sender: FDA-Public Use
  Company Number: 2005080643

PATIENT
  Sex: Female
  Weight: 88.4514 kg

DRUGS (7)
  1. CELEBREX [Suspect]
     Indication: ARTHRITIS
     Dosage: 200 ,G ( 200 MG, 1 IN 1 D), ORAL
     Route: 048
  2. AMBIEN [Concomitant]
  3. LEXAPRO [Concomitant]
  4. LORAZEPAM [Concomitant]
  5. PROVIGIL [Concomitant]
  6. TYLENOL W/ CODEINE [Concomitant]
  7. DURAGESIC (FENTANYL) [Concomitant]

REACTIONS (8)
  - BODY HEIGHT DECREASED [None]
  - CERVIX DISORDER [None]
  - HYSTERECTOMY [None]
  - LIGAMENT CALCIFICATION [None]
  - MASTECTOMY [None]
  - METRORRHAGIA [None]
  - UTERINE NEOPLASM [None]
  - VAGINAL HAEMORRHAGE [None]
